FAERS Safety Report 8010506-4 (Version None)
Quarter: 2011Q4

REPORT INFORMATION
  Report Type: 
  Country: None (occurrence: None)
  Receive Date: 20111222
  Receipt Date: 20111208
  Transmission Date: 20120403
  Serious: Yes (Death)
  Sender: FDA-Public Use
  Company Number: 2011-546

PATIENT
  Age: 69 Year
  Sex: Female

DRUGS (1)
  1. FAZACLO ODT [Suspect]
     Dosage: 250 MG, QD, ORAL
     Route: 048
     Dates: start: 20060209

REACTIONS (2)
  - INTESTINAL OBSTRUCTION [None]
  - HUNTINGTON'S DISEASE [None]
